FAERS Safety Report 7546156-3 (Version None)
Quarter: 2011Q2

REPORT INFORMATION
  Report Type: 
  Country: None (occurrence: None)
  Receive Date: 20110614
  Receipt Date: 20020418
  Transmission Date: 20111010
  Serious: Yes (Death, Other)
  Sender: FDA-Public Use
  Company Number: PHEH2002US03257

PATIENT
  Sex: Female

DRUGS (5)
  1. EXELON [Suspect]
     Indication: DEMENTIA ALZHEIMER'S TYPE
     Dosage: 1.5 MG, BID
     Route: 048
     Dates: start: 20010115
  2. DIGOXIN [Concomitant]
  3. KLOR-CON [Concomitant]
     Dosage: UNK
  4. LASIX [Concomitant]
  5. CELEXA [Concomitant]

REACTIONS (2)
  - CARDIOPULMONARY FAILURE [None]
  - PNEUMONIA [None]
